FAERS Safety Report 9607127 (Version 5)
Quarter: 2014Q1

REPORT INFORMATION
  Report Type: Spontaneous
  Country: US (occurrence: US)
  Receive Date: 20131009
  Receipt Date: 20140211
  Transmission Date: 20141002
  Serious: Yes (Hospitalization)
  Sender: FDA-Public Use
  Company Number: US-BIOGENIDEC-2013BI088592

PATIENT
  Age: 64 Year
  Sex: Female

DRUGS (3)
  1. TECFIDERA [Suspect]
     Indication: MULTIPLE SCLEROSIS
     Route: 048
     Dates: start: 20130909
  2. TECFIDERA [Suspect]
     Indication: MULTIPLE SCLEROSIS
     Route: 048
     Dates: end: 20130927
  3. AVONEX [Concomitant]
     Indication: MULTIPLE SCLEROSIS
     Route: 030
     Dates: start: 19960630

REACTIONS (4)
  - Gastrointestinal haemorrhage [Recovered/Resolved]
  - Colitis ulcerative [Recovered/Resolved]
  - Irritable bowel syndrome [Not Recovered/Not Resolved]
  - Diarrhoea [Not Recovered/Not Resolved]
